FAERS Safety Report 16876970 (Version 2)
Quarter: 2019Q4

REPORT INFORMATION
  Report Type: Spontaneous
  Country: JP (occurrence: JP)
  Receive Date: 20191002
  Receipt Date: 20191116
  Transmission Date: 20200122
  Serious: Yes (Death)
  Sender: FDA-Public Use
  Company Number: PHJP2019JP012765

PATIENT
  Age: 82 Year
  Sex: Female

DRUGS (1)
  1. AFINITOR [Suspect]
     Active Substance: EVEROLIMUS
     Indication: PANCREATIC NEUROENDOCRINE TUMOUR
     Dosage: 10 MG
     Route: 048

REACTIONS (3)
  - Pancreatic neuroendocrine tumour [Fatal]
  - Decreased appetite [Unknown]
  - Malignant neoplasm progression [Fatal]
